FAERS Safety Report 12444739 (Version 9)
Quarter: 2017Q1

REPORT INFORMATION
  Report Type: Spontaneous
  Country: US (occurrence: US)
  Receive Date: 20160607
  Receipt Date: 20170201
  Transmission Date: 20170428
  Serious: No
  Sender: FDA-Public Use
  Company Number: US-ACTELION-A-US2016-137042

PATIENT
  Age: 52 Year
  Sex: Male
  Weight: 81.63 kg

DRUGS (8)
  1. LETAIRIS [Concomitant]
     Active Substance: AMBRISENTAN
  2. CIALIS [Concomitant]
     Active Substance: TADALAFIL
  3. UPTRAVI [Suspect]
     Active Substance: SELEXIPAG
     Dosage: 1600 MCG, BID
     Route: 048
     Dates: start: 20160517
  4. UPTRAVI [Suspect]
     Active Substance: SELEXIPAG
     Dosage: 1600 MCG, BID
     Route: 048
     Dates: start: 20160517
  5. UPTRAVI [Suspect]
     Active Substance: SELEXIPAG
     Dosage: 600 MCG, BID
     Route: 048
  6. UPTRAVI [Suspect]
     Active Substance: SELEXIPAG
     Dosage: 1400 MCG, BID
     Route: 048
  7. RIOCIGUAT [Concomitant]
     Active Substance: RIOCIGUAT
  8. UPTRAVI [Suspect]
     Active Substance: SELEXIPAG
     Indication: PULMONARY ARTERIAL HYPERTENSION
     Dosage: 200 MCG, BID
     Route: 048
     Dates: start: 20160517

REACTIONS (26)
  - Nasal congestion [Unknown]
  - Hypotension [Unknown]
  - Headache [Unknown]
  - Weight decreased [Unknown]
  - Myalgia [Unknown]
  - Decreased appetite [Unknown]
  - Dizziness postural [Unknown]
  - Fatigue [Unknown]
  - Pain [Recovering/Resolving]
  - Muscle fatigue [Unknown]
  - Blood pressure decreased [Unknown]
  - Arthralgia [Unknown]
  - Weight increased [Unknown]
  - Dyspnoea [Unknown]
  - Pain in extremity [Unknown]
  - Tachycardia [Unknown]
  - Heart rate irregular [Unknown]
  - Vomiting [Unknown]
  - Extra dose administered [Recovering/Resolving]
  - Nasopharyngitis [Recovering/Resolving]
  - Malaise [Recovering/Resolving]
  - Dysgeusia [Unknown]
  - Restless legs syndrome [Unknown]
  - Heart rate increased [Unknown]
  - Insomnia [Unknown]
  - Dizziness [Unknown]

NARRATIVE: CASE EVENT DATE: 20160517
